FAERS Safety Report 5079925-2 (Version None)
Quarter: 2006Q3

REPORT INFORMATION
  Report Type: 
  Country: None (occurrence: None)
  Receive Date: 20060815
  Receipt Date: 20060725
  Transmission Date: 20061208
  Serious: Yes (Hospitalization, Other)
  Sender: FDA-Public Use
  Company Number: US-AMGEN-US187729

PATIENT
  Sex: Male

DRUGS (11)
  1. PROCRIT [Suspect]
     Indication: RENAL FAILURE CHRONIC
     Route: 058
     Dates: start: 20060717
  2. UNSPECIFIED MEDICATION [Suspect]
     Route: 065
  3. PROZAC [Concomitant]
     Route: 065
  4. INSULIN [Concomitant]
     Route: 065
  5. ALDACTONE [Concomitant]
     Route: 065
  6. LASIX [Concomitant]
     Route: 065
  7. PROPRANOLOL [Concomitant]
     Route: 065
  8. GLIPIZIDE [Concomitant]
     Route: 065
  9. IRON SULFATETHIAMIN COMPOUND TAB [Concomitant]
     Route: 065
  10. PREDNISONE [Concomitant]
     Route: 065
  11. VICODIN [Concomitant]
     Route: 065

REACTIONS (2)
  - APLASTIC ANAEMIA [None]
  - BLOOD PRODUCT TRANSFUSION DEPENDENT [None]
